FAERS Safety Report 8449827-X (Version None)
Quarter: 2012Q2

REPORT INFORMATION
  Report Type: 
  Country: None (occurrence: None)
  Receive Date: 20120620
  Receipt Date: 20120607
  Transmission Date: 20120825
  Serious: Yes (Hospitalization)
  Sender: FDA-Public Use
  Company Number: US-ELI_LILLY_AND_COMPANY-US201206002957

PATIENT
  Sex: Female

DRUGS (2)
  1. CYMBALTA [Suspect]
     Dosage: 20 MG, QD
     Route: 065
  2. CYMBALTA [Suspect]
     Dosage: 40 MG, QD
     Route: 065

REACTIONS (7)
  - DREAMY STATE [None]
  - AMNESIA [None]
  - FATIGUE [None]
  - RASH GENERALISED [None]
  - FEELING ABNORMAL [None]
  - HOSPITALISATION [None]
  - VOMITING [None]
